FAERS Safety Report 8816955 (Version 1)
Quarter: 2012Q4

REPORT INFORMATION
  Report Type: Spontaneous
  Country: JP (occurrence: None)
  Receive Date: 20121002
  Receipt Date: 20121002
  Transmission Date: 20130627
  Serious: Yes (Other)
  Sender: FDA-Public Use
  Company Number: DSA_59870_2012

PATIENT

DRUGS (3)
  1. FLUOROURACIL [Suspect]
     Indication: ANAL CANCER
     Dosage: (100 mg/m2; intravenous (not otherwise specified))
     Route: 042
  2. MITOMYCIN [Suspect]
     Indication: ANAL CANCER
  3. THERAPEUTIC RADIOPHARMACEUTICALS (THERAPEUTIC RADIOPHARMACEUTICALS) [Suspect]
     Indication: ANAL CANCER
     Dosage: (1.8 Gy daily)

REACTIONS (2)
  - Dermatitis [None]
  - Toxicity to various agents [None]
